FAERS Safety Report 5415195-0 (Version None)
Quarter: 2007Q3

REPORT INFORMATION
  Report Type: 
  Country: None (occurrence: None)
  Receive Date: 20070815
  Receipt Date: 20070719
  Transmission Date: 20080115
  Serious: No
  Sender: FDA-Public Use
  Company Number: A0665262A

PATIENT
  Sex: Male

DRUGS (5)
  1. COREG CR [Suspect]
     Indication: LEFT VENTRICULAR DYSFUNCTION
     Dosage: 20MG PER DAY
     Route: 048
     Dates: start: 20070401
  2. TICLID [Suspect]
     Indication: DRUG USE FOR UNKNOWN INDICATION
     Route: 065
     Dates: start: 20070401
  3. NORVASC [Concomitant]
  4. HYTRIN [Concomitant]
  5. NEXIUM [Concomitant]

REACTIONS (2)
  - SPEECH DISORDER [None]
  - TONGUE DISORDER [None]
